FAERS Safety Report 12402260 (Version 2)
Quarter: 2016Q3

REPORT INFORMATION
  Report Type: Spontaneous
  Country: NL (occurrence: NL)
  Receive Date: 20160525
  Receipt Date: 20160720
  Transmission Date: 20161109
  Serious: Yes (Other)
  Sender: FDA-Public Use
  Company Number: NL-MYLANLABS-2016M1021420

PATIENT

DRUGS (1)
  1. AZATHIOPRINE. [Suspect]
     Active Substance: AZATHIOPRINE
     Indication: HIDRADENITIS
     Dosage: 0.54 MG/KG PER DAY
     Route: 065

REACTIONS (4)
  - Pancreatitis [Unknown]
  - Off label use [Unknown]
  - Dry skin [Unknown]
  - Diarrhoea [Unknown]
